FAERS Safety Report 7100375-9 (Version None)
Quarter: 2010Q4

REPORT INFORMATION
  Report Type: 
  Country: None (occurrence: None)
  Receive Date: 20101112
  Receipt Date: 20101102
  Transmission Date: 20110411
  Serious: Yes (Other)
  Sender: FDA-Public Use
  Company Number: US-AMGEN-USASP2010001320

PATIENT

DRUGS (31)
  1. PROLIA [Suspect]
     Indication: OSTEOPOROSIS POSTMENOPAUSAL
     Dosage: 60 MG, Q6MO
     Route: 058
     Dates: start: 20100930
  2. PROCRIT [Suspect]
     Indication: RENAL FAILURE CHRONIC
     Dosage: 10000 UNIT, QWK
     Route: 058
     Dates: start: 20080721
  3. ERGOCALCIFEROL [Concomitant]
     Dosage: 50000 IU, QWK
     Route: 048
  4. CALCITONIN [Concomitant]
  5. ACYCLOVIR [Concomitant]
     Dosage: UNK UNK, QD
     Dates: start: 20080806
  6. AMIODARONE HCL [Concomitant]
     Dosage: 200 MG, QD
     Route: 048
     Dates: start: 20080623
  7. ASPIRIN [Concomitant]
     Dosage: 81 MG, QD
     Route: 048
     Dates: start: 20080623
  8. BUMETANIDE [Concomitant]
     Dosage: 2 MG, UNK
     Route: 048
     Dates: start: 20100517
  9. CARISOPRODOL [Concomitant]
     Dosage: 350 MG, TID
     Route: 048
     Dates: start: 20081022
  10. DIGOXIN [Concomitant]
     Dosage: 0.125 MG, QD
     Route: 048
     Dates: start: 20090831
  11. ACETAMINOPHEN AND HYDROCODONE BITARTRATE [Concomitant]
     Dosage: UNK
     Route: 048
     Dates: start: 20081022
  12. JANUVIA [Concomitant]
     Dosage: 25 MG, QD
     Route: 048
     Dates: start: 20100603
  13. KLOR-CON [Concomitant]
     Dosage: 20 MEQ, QD
     Route: 048
     Dates: start: 20091106
  14. LEVAQUIN [Concomitant]
     Dosage: 500 MG, QD
     Route: 048
     Dates: start: 20101019
  15. LYRICA [Concomitant]
     Dosage: 50 MG, TID
     Route: 048
     Dates: start: 20090520
  16. MOMETASONE FUROATE [Concomitant]
     Dosage: UNK
     Dates: start: 20100827
  17. MUPIROCIN [Concomitant]
     Dosage: UNK UNK, BID
     Route: 061
     Dates: start: 20100401
  18. NADOLOL [Concomitant]
     Dosage: 40 MG, BID
     Route: 048
     Dates: start: 20080709
  19. NASONEX [Concomitant]
     Dosage: UNK
     Dates: start: 20090909
  20. NITROSTAT [Concomitant]
     Dosage: UNK
     Route: 048
     Dates: start: 20060922
  21. NYSTATIN [Concomitant]
     Dosage: UNK
     Route: 048
     Dates: start: 20100126
  22. OMEPRAZOLE [Concomitant]
     Dosage: 20 MG, QD
     Route: 048
     Dates: start: 20100603
  23. OXYBUTYNIN [Concomitant]
     Dosage: 10 MG, QD
     Route: 048
     Dates: start: 20091026
  24. PANTOPRAZOLE [Concomitant]
     Dosage: 40 MG, BID
     Route: 048
     Dates: start: 20100524
  25. PLAQUENIL                          /00072601/ [Concomitant]
     Dosage: UNK UNK, QD
     Route: 048
     Dates: start: 20100106
  26. PREDNISONE [Concomitant]
     Dosage: UNK
     Dates: start: 20101008
  27. PROMETHAZINE [Concomitant]
     Dosage: 12.5 MG, UNK
     Route: 048
     Dates: start: 20100303
  28. REGRANEX [Concomitant]
     Dosage: UNK UNK, BID
     Dates: start: 20100901
  29. SYMBICORT [Concomitant]
     Dosage: UNK UNK, BID
     Dates: start: 20090731
  30. TOBRAMYCIN SULFATE [Concomitant]
     Dosage: UNK
     Dates: start: 20100324
  31. WARFARIN SODIUM [Concomitant]
     Dosage: UNK
     Dates: start: 20080623

REACTIONS (3)
  - BLOOD CALCIUM DECREASED [None]
  - BLOOD PARATHYROID HORMONE INCREASED [None]
  - PARATHYROID GLAND ENLARGEMENT [None]
